FAERS Safety Report 12258308 (Version 1)
Quarter: 2016Q2

REPORT INFORMATION
  Report Type: Report from Study
  Country: FR (occurrence: FR)
  Receive Date: 20160412
  Receipt Date: 20160412
  Transmission Date: 20160815
  Serious: Yes (Hospitalization)
  Sender: FDA-Public Use
  Company Number: FR-CELGENE-056-21880-12080067

PATIENT
  Age: 62 Year
  Sex: Male

DRUGS (21)
  1. TERCIAN [Concomitant]
     Active Substance: CYAMEMAZINE
     Indication: INSOMNIA
     Route: 065
  2. LEXOMIL [Concomitant]
     Active Substance: BROMAZEPAM
     Indication: INSOMNIA
     Route: 065
  3. BORTEZOMIB [Suspect]
     Active Substance: BORTEZOMIB
     Indication: PLASMA CELL MYELOMA
     Route: 065
     Dates: start: 20111201, end: 20120713
  4. TERCIAN [Concomitant]
     Active Substance: CYAMEMAZINE
     Route: 065
  5. BACTRIM [Concomitant]
     Active Substance: SULFAMETHOXAZOLE\TRIMETHOPRIM
     Indication: PROPHYLAXIS
     Route: 048
     Dates: start: 20111201
  6. ZELITREX [Concomitant]
     Active Substance: VALACYCLOVIR HYDROCHLORIDE
     Indication: PROPHYLAXIS
     Route: 048
     Dates: start: 20111201
  7. OXYNORM [Concomitant]
     Active Substance: OXYCODONE HYDROCHLORIDE
     Indication: NEUROPATHY PERIPHERAL
     Route: 048
  8. REVLIMID [Suspect]
     Active Substance: LENALIDOMIDE
     Indication: PLASMA CELL MYELOMA
     Route: 048
     Dates: start: 20111201, end: 20120724
  9. REVLIMID [Suspect]
     Active Substance: LENALIDOMIDE
     Route: 048
     Dates: start: 20120808
  10. DEXAMETHASONE. [Suspect]
     Active Substance: DEXAMETHASONE
     Indication: PLASMA CELL MYELOMA
     Route: 065
     Dates: start: 20111201
  11. TERCIAN [Concomitant]
     Active Substance: CYAMEMAZINE
     Route: 065
  12. LEDERFOLINE [Concomitant]
     Active Substance: LEUCOVORIN CALCIUM
     Indication: PROPHYLAXIS
     Route: 048
     Dates: start: 20111201
  13. RIVOTRIL [Concomitant]
     Active Substance: CLONAZEPAM
     Indication: NEUROPATHY PERIPHERAL
     Route: 048
     Dates: start: 201202
  14. RIVOTRIL [Concomitant]
     Active Substance: CLONAZEPAM
     Route: 048
  15. DUROGESIC [Concomitant]
     Active Substance: FENTANYL
     Indication: NEUROPATHY PERIPHERAL
     Route: 048
     Dates: start: 20120424
  16. ZOMETA [Concomitant]
     Active Substance: ZOLEDRONIC ACID
     Indication: PROPHYLAXIS
     Route: 041
     Dates: start: 2011
  17. STILNOX [Concomitant]
     Active Substance: ZOLPIDEM TARTRATE
     Indication: INSOMNIA
     Route: 065
  18. XATRAL [Concomitant]
     Active Substance: ALFUZOSIN
     Indication: PRODUCT USED FOR UNKNOWN INDICATION
     Route: 065
  19. OGAST [Concomitant]
     Active Substance: LANSOPRAZOLE
     Indication: HIATUS HERNIA
     Route: 048
  20. EFFERALGAN CODEINE [Concomitant]
     Active Substance: ACETAMINOPHEN\CODEINE PHOSPHATE
     Indication: NEUROPATHY PERIPHERAL
     Route: 065
  21. ORACILLINE [Concomitant]
     Active Substance: PENICILLIN V
     Indication: PROPHYLAXIS
     Route: 048
     Dates: start: 20111201

REACTIONS (1)
  - Anxiety [Recovered/Resolved]

NARRATIVE: CASE EVENT DATE: 20120614
